FAERS Safety Report 6161490-X (Version None)
Quarter: 2009Q2

REPORT INFORMATION
  Report Type: 
  Country: None (occurrence: None)
  Receive Date: 20090421
  Receipt Date: 20090413
  Transmission Date: 20091009
  Serious: Yes (Hospitalization)
  Sender: FDA-Public Use
  Company Number: PHHY2008MX30176

PATIENT
  Age: 77 Year
  Sex: Female

DRUGS (1)
  1. DIOVAN HCT [Suspect]
     Indication: HYPERTENSION
     Dosage: 160/25 MG PER DAY
     Route: 048
     Dates: start: 20050301

REACTIONS (6)
  - BONE MARROW FAILURE [None]
  - CEREBRAL INFARCTION [None]
  - FALL [None]
  - PROSTHESIS IMPLANTATION [None]
  - SURGERY [None]
  - VERTEBRAL INJURY [None]
